FAERS Safety Report 20455229 (Version 3)
Quarter: 2022Q1

REPORT INFORMATION
  Report Type: Spontaneous
  Country: US (occurrence: US)
  Receive Date: 20220210
  Receipt Date: 20220228
  Transmission Date: 20220423
  Serious: No
  Sender: FDA-Public Use
  Company Number: US-SANOFI-00960566

PATIENT
  Age: 71 Year
  Sex: Male

DRUGS (1)
  1. LANTUS SOLOSTAR [Suspect]
     Active Substance: INSULIN GLARGINE
     Indication: Type 2 diabetes mellitus
     Dosage: 30 IU, QD

REACTIONS (4)
  - Blood glucose increased [Unknown]
  - Device issue [Unknown]
  - Liquid product physical issue [Unknown]
  - Drug ineffective [Unknown]
